FAERS Safety Report 23930936 (Version 1)
Quarter: 2024Q2

REPORT INFORMATION
  Report Type: Spontaneous
  Country: FI (occurrence: FI)
  Receive Date: 20240603
  Receipt Date: 20240603
  Transmission Date: 20240716
  Serious: Yes (Hospitalization)
  Sender: FDA-Public Use
  Company Number: None

PATIENT
  Age: 53 Year
  Sex: Male

DRUGS (2)
  1. OLANZAPINE PAMOATE [Suspect]
     Active Substance: OLANZAPINE PAMOATE
     Indication: Schizophrenia
     Dosage: 300 MG. PREVIOUS EXPOSURE TO THE SUSPECTED DRUG: AT LEAST 10-11 YEARS OF ZYPADHERA INJECTION THER...
     Route: 030
     Dates: start: 2013
  2. SIMVASTATIN [Concomitant]
     Active Substance: SIMVASTATIN
     Indication: Hypercholesterolaemia
     Dosage: 20 MG
     Route: 048
     Dates: start: 20220531

REACTIONS (4)
  - Heart rate increased [Recovered/Resolved]
  - Hypoaesthesia [Recovered/Resolved]
  - Urticaria [Recovered/Resolved]
  - Post-injection delirium sedation syndrome [Recovered/Resolved]

NARRATIVE: CASE EVENT DATE: 20240515
